FAERS Safety Report 17949910 (Version 1)
Quarter: 2020Q2

REPORT INFORMATION
  Report Type: Spontaneous
  Country: CL (occurrence: CL)
  Receive Date: 20200625
  Receipt Date: 20200625
  Transmission Date: 20200714
  Serious: Yes (Other)
  Sender: FDA-Public Use
  Company Number: NVSC2020CL179448

PATIENT
  Sex: Male

DRUGS (1)
  1. FINGOLIMOD. [Suspect]
     Active Substance: FINGOLIMOD
     Indication: RELAPSING-REMITTING MULTIPLE SCLEROSIS
     Dosage: UNK
     Route: 065

REACTIONS (8)
  - Muscle spasticity [Unknown]
  - Pain [Unknown]
  - Fatigue [Unknown]
  - Emotional disorder [Unknown]
  - Sexual dysfunction [Unknown]
  - Sensory disturbance [Unknown]
  - Eye disorder [Unknown]
  - Motor dysfunction [Unknown]
